APPROVED DRUG PRODUCT: POTASSIUM ACETATE
Active Ingredient: POTASSIUM ACETATE
Strength: 2MEQ/ML
Dosage Form/Route: INJECTABLE;INJECTION
Application: A206203 | Product #001
Applicant: EXELA PHARMA SCIENCES LLC
Approved: Dec 29, 2015 | RLD: No | RS: No | Type: DISCN